FAERS Safety Report 8803328 (Version 2)
Quarter: 2015Q1

REPORT INFORMATION
  Report Type: Report from Study
  Country: US (occurrence: US)
  Receive Date: 20120924
  Receipt Date: 20150313
  Transmission Date: 20150721
  Serious: Yes (Death)
  Sender: FDA-Public Use
  Company Number: US-ROCHE-1104283

PATIENT
  Age: 50 Year
  Sex: Male

DRUGS (15)
  1. PRILOSEC [Concomitant]
     Active Substance: OMEPRAZOLE MAGNESIUM
     Route: 048
  2. SENOKOT [Concomitant]
     Active Substance: SENNOSIDES
     Dosage: 4 TABLETS AT BEDTIME
     Route: 065
  3. DEXAMETHASONE. [Concomitant]
     Active Substance: DEXAMETHASONE
     Route: 042
  4. SUDAFED [Concomitant]
     Active Substance: PSEUDOEPHEDRINE HYDROCHLORIDE
     Route: 048
  5. CPT-11 [Concomitant]
     Active Substance: IRINOTECAN
     Route: 042
     Dates: start: 200709
  6. ACETAMINOPHEN. [Concomitant]
     Active Substance: ACETAMINOPHEN
     Route: 048
  7. ZOFRAN [Concomitant]
     Active Substance: ONDANSETRON HYDROCHLORIDE
     Route: 048
     Dates: start: 20070906
  8. GABAPENTIN. [Concomitant]
     Active Substance: GABAPENTIN
  9. LORTAB (UNITED STATES) [Concomitant]
     Dosage: 5 TO 500 MG EVERY 4 TO 6 HOURLY
     Route: 048
  10. AVASTIN [Suspect]
     Active Substance: BEVACIZUMAB
     Indication: BRAIN NEOPLASM MALIGNANT
     Route: 042
     Dates: start: 20070906
  11. TYLENOL [Concomitant]
     Active Substance: ACETAMINOPHEN
     Route: 048
  12. KEPPRA [Concomitant]
     Active Substance: LEVETIRACETAM
     Dosage: 2 TABLETS IN AM AND 3 IN PM
     Route: 048
     Dates: start: 20070504
  13. AVASTIN [Suspect]
     Active Substance: BEVACIZUMAB
     Route: 042
  14. PALONOSETRON HYDROCHLORIDE [Concomitant]
     Active Substance: PALONOSETRON HYDROCHLORIDE
     Route: 042
  15. LAMICTAL [Concomitant]
     Active Substance: LAMOTRIGINE
     Route: 048
     Dates: start: 20070504

REACTIONS (4)
  - Death [Fatal]
  - Headache [Recovered/Resolved]
  - Therapy responder [Unknown]
  - Fatigue [Unknown]

NARRATIVE: CASE EVENT DATE: 20080207
